FAERS Safety Report 5101882-0 (Version None)
Quarter: 2006Q3

REPORT INFORMATION
  Report Type: 
  Country: None (occurrence: None)
  Receive Date: 20060907
  Receipt Date: 20060818
  Transmission Date: 20061208
  Serious: Yes (Hospitalization, Other)
  Sender: FDA-Public Use
  Company Number: US200603001872

PATIENT
  Age: 72 Year
  Sex: Female

DRUGS (6)
  1. FORTEO [Suspect]
     Indication: OSTEOPOROSIS
     Dates: start: 20050204
  2. FORTEO [Suspect]
  3. FORTEO [Concomitant]
  4. DESLORATADINE (DESLORATADINE) [Concomitant]
  5. TIMOPTIC [Concomitant]
  6. PAMOL (PARACETAMOL) [Concomitant]

REACTIONS (12)
  - ASTHENIA [None]
  - BODY TEMPERATURE INCREASED [None]
  - DEEP VEIN THROMBOSIS [None]
  - GENE MUTATION IDENTIFICATION TEST POSITIVE [None]
  - INJECTION SITE PAIN [None]
  - MUSCLE SPASMS [None]
  - PHARMACEUTICAL PRODUCT COMPLAINT [None]
  - PULMONARY EMBOLISM [None]
  - WEIGHT DECREASED [None]
  - WEIGHT INCREASED [None]
  - WEIGHT LOSS POOR [None]
  - WRONG TECHNIQUE IN DRUG USAGE PROCESS [None]
